FAERS Safety Report 13960430 (Version 1)
Quarter: 2017Q3

REPORT INFORMATION
  Report Type: Spontaneous
  Country: US (occurrence: None)
  Receive Date: 20170912
  Receipt Date: 20170912
  Transmission Date: 20171128
  Serious: Yes (Hospitalization)
  Sender: FDA-Public Use
  Company Number: None

PATIENT
  Age: 77 Year
  Sex: Female
  Weight: 62.6 kg

DRUGS (12)
  1. POTASSIUM [Concomitant]
     Active Substance: POTASSIUM
  2. PROBIOTIC [Concomitant]
     Active Substance: PROBIOTICS NOS
  3. ASPRIN [Concomitant]
     Active Substance: ASPIRIN
  4. SPIRONOLACTONE. [Concomitant]
     Active Substance: SPIRONOLACTONE
  5. TRAMADOL. [Concomitant]
     Active Substance: TRAMADOL
  6. 1 DAY VITAMINE [Concomitant]
  7. BYDUREON [Suspect]
     Active Substance: EXENATIDE
     Indication: DIABETES MELLITUS
     Dates: start: 20170418, end: 20170702
  8. LEVOTHYRINE [Concomitant]
  9. VITAMIN D [Concomitant]
     Active Substance: CHOLECALCIFEROL
  10. NOVOLOG [Concomitant]
     Active Substance: INSULIN ASPART
  11. HYDROCHLOROTHIAZIDE. [Concomitant]
     Active Substance: HYDROCHLOROTHIAZIDE
  12. FO/ICE [Concomitant]

REACTIONS (5)
  - Diarrhoea [None]
  - Weight decreased [None]
  - Vomiting [None]
  - Malaise [None]
  - Feeding disorder [None]

NARRATIVE: CASE EVENT DATE: 20170418
